FAERS Safety Report 7092538-6 (Version None)
Quarter: 2010Q4

REPORT INFORMATION
  Report Type: 
  Country: None (occurrence: None)
  Receive Date: 20101110
  Receipt Date: 20101015
  Transmission Date: 20110411
  Serious: Yes (Hospitalization)
  Sender: FDA-Public Use
  Company Number: UA-TEVA-251515ISR

PATIENT
  Sex: Female
  Weight: 65 kg

DRUGS (4)
  1. NEUGRANIN [Suspect]
     Indication: PROPHYLAXIS
     Dosage: DOUBLE BLIND - NEUGRANIN 40MG OR PEGFILGRASTIM 6MG
     Route: 058
     Dates: start: 20101007, end: 20101007
  2. PEGFILGRASTIM [Suspect]
     Indication: PROPHYLAXIS
     Dosage: DOUBLE BLIND - NEUGRANIN 40MG OR PEGFILGRASTIM 6MG
     Route: 058
     Dates: start: 20101007, end: 20101007
  3. DOXORUBICIN HCL [Suspect]
     Indication: BREAST CANCER
     Route: 042
     Dates: start: 20101006, end: 20101006
  4. DOCETAXEL [Suspect]
     Indication: BREAST CANCER
     Route: 042
     Dates: start: 20101006, end: 20101006

REACTIONS (4)
  - ACUTE TONSILLITIS [None]
  - FEBRILE NEUTROPENIA [None]
  - HYPERTHERMIA [None]
  - THROMBOCYTOPENIA [None]
